FAERS Safety Report 7387872-6 (Version None)
Quarter: 2011Q1

REPORT INFORMATION
  Report Type: 
  Country: None (occurrence: None)
  Receive Date: 20110331
  Receipt Date: 20110301
  Transmission Date: 20110831
  Serious: Yes (Hospitalization, Other)
  Sender: FDA-Public Use
  Company Number: US-BAYER-201035519NA

PATIENT
  Sex: Female
  Weight: 102.4 kg

DRUGS (16)
  1. NAPROXEN [Concomitant]
     Route: 048
  2. TRAMADOL [Concomitant]
     Dosage: 50 MG, PRN
     Route: 048
  3. PEPCID AC [Concomitant]
     Dosage: 20 MG, BID
  4. FLEXERIL [Concomitant]
     Dosage: 10 MG, UNK
     Route: 048
  5. LIPITOR [Concomitant]
     Dosage: 10 MG, QD
     Route: 048
     Dates: start: 20050101
  6. COLACE [Concomitant]
     Dosage: 100 MG, BID
     Route: 048
  7. PERCOCET [Concomitant]
     Indication: PAIN
     Dosage: 650 MG, UNK
  8. UNCODEABLE ^UNCLASSIFIABLE^ [Concomitant]
  9. NITROGLYCERIN [Concomitant]
     Dosage: 0.4 MG, PRN
  10. SIMVASTATIN [Concomitant]
     Indication: BLOOD CHOLESTEROL INCREASED
     Dosage: 20 MG, QD
     Route: 048
     Dates: start: 20071003
  11. METFORMIN HCL [Concomitant]
     Indication: DIABETES MELLITUS
     Dosage: 500 MG, TID
     Dates: start: 20090501
  12. YASMIN [Suspect]
     Indication: MENSTRUATION IRREGULAR
     Dosage: UNK UNK, UNK
     Route: 048
     Dates: start: 20090407, end: 20090701
  13. ALBUTEROL [Concomitant]
     Dosage: 2.5 MG, PRN
     Route: 045
  14. UNCODEABLE ^UNCLASSIFIABLE^ [Concomitant]
     Dosage: UNK UNK, PRN
  15. UNCODEABLE ^UNCLASSIFIABLE^ [Concomitant]
  16. POLYETHYLENE GLYCOL [Concomitant]
     Route: 048

REACTIONS (1)
  - PULMONARY EMBOLISM [None]
